FAERS Safety Report 8927258 (Version 1)
Quarter: 2012Q4

REPORT INFORMATION
  Report Type: 
  Country: SE (occurrence: SE)
  Receive Date: 20121127
  Receipt Date: 20121127
  Transmission Date: 20130627
  Serious: Yes (Other)
  Sender: FDA-Public Use
  Company Number: SE-JNJFOC-20121110519

PATIENT
  Age: 3 None
  Sex: Female

DRUGS (4)
  1. DARUNAVIR [Suspect]
     Indication: HIV INFECTION
     Route: 048
     Dates: start: 200904
  2. RITONAVIR [Suspect]
     Indication: HIV INFECTION
     Route: 065
     Dates: start: 200904
  3. ABACAVIR [Suspect]
     Indication: HIV INFECTION
     Route: 065
     Dates: start: 200904, end: 200908
  4. LAMIVUDINE [Suspect]
     Indication: HIV INFECTION
     Route: 065
     Dates: start: 200705, end: 200908

REACTIONS (3)
  - CSF protein increased [Recovered/Resolved]
  - Viral load increased [Recovering/Resolving]
  - Rash [Unknown]
